FAERS Safety Report 7065708-0 (Version None)
Quarter: 2010Q4

REPORT INFORMATION
  Report Type: 
  Country: None (occurrence: None)
  Receive Date: 20101027
  Receipt Date: 20101013
  Transmission Date: 20110411
  Serious: Yes (Hospitalization, Other)
  Sender: FDA-Public Use
  Company Number: PHHY2010BR69277

PATIENT
  Sex: Female

DRUGS (3)
  1. DIOVAN [Suspect]
     Dosage: 80 MG
  2. SERETIDE ^ALLEN + HANBURYS LTD^ [Concomitant]
     Indication: EMPHYSEMA
     Dosage: 25/250 MCG TWICE A DAY
  3. NATRILIX - SLOW RELEASE [Concomitant]
     Indication: HYPERTENSION
     Dosage: 1 TABLET A DAY
     Route: 048

REACTIONS (6)
  - ANXIETY [None]
  - BLINDNESS [None]
  - BLOOD PRESSURE INCREASED [None]
  - EYE INJURY [None]
  - EYE OPERATION [None]
  - FALL [None]
